FAERS Safety Report 6654364-9 (Version None)
Quarter: 2010Q1

REPORT INFORMATION
  Report Type: 
  Country: None (occurrence: None)
  Receive Date: 20100326
  Receipt Date: 20100315
  Transmission Date: 20100710
  Serious: Yes (Other)
  Sender: FDA-Public Use
  Company Number: JP-PFIZER INC-2010011792

PATIENT
  Age: 26 Year
  Sex: Female
  Weight: 44 kg

DRUGS (2)
  1. CABERGOLINE [Suspect]
     Indication: HYPERPROLACTINAEMIA
     Dosage: 0.25 MG DAILY, ONCE A WEEK
     Route: 048
     Dates: start: 20090930, end: 20090930
  2. CABERGOLINE [Suspect]
     Indication: MENSTRUATION IRREGULAR

REACTIONS (5)
  - CARDIAC DISORDER [None]
  - ELECTROCARDIOGRAM ABNORMAL [None]
  - MITRAL VALVE INCOMPETENCE [None]
  - PALPITATIONS [None]
  - TRICUSPID VALVE INCOMPETENCE [None]
